FAERS Safety Report 8765753 (Version 1)
Quarter: 2012Q4

REPORT INFORMATION
  Report Type: 
  Country: US (occurrence: US)
  Receive Date: 20120903
  Receipt Date: 20120903
  Transmission Date: 20130627
  Serious: No
  Sender: FDA-Public Use
  Company Number: US-PFIZER INC-2012214469

PATIENT
  Age: 49 Year
  Sex: Female

DRUGS (5)
  1. LYRICA [Suspect]
     Indication: PAIN
     Dosage: 150 mg, 3x/day
     Route: 048
     Dates: start: 201201, end: 201207
  2. LYRICA [Suspect]
     Indication: NEUROPATHY PERIPHERAL
  3. NORVASC [Concomitant]
     Indication: HYPERTENSION
     Dosage: UNK
  4. BENICAR [Concomitant]
     Indication: HYPERTENSION
     Dosage: UNK
  5. BYSTOLIC [Concomitant]
     Indication: HYPERTENSION
     Dosage: UNK

REACTIONS (1)
  - Weight increased [Not Recovered/Not Resolved]
